FAERS Safety Report 4531905-9 (Version None)
Quarter: 2004Q4

REPORT INFORMATION
  Report Type: 
  Country: None (occurrence: None)
  Receive Date: 20041216
  Receipt Date: 20041130
  Transmission Date: 20050328
  Serious: Yes (Other)
  Sender: FDA-Public Use
  Company Number: USA041184844

PATIENT
  Age: 77 Year
  Sex: Female

DRUGS (3)
  1. ZYPREXA [Suspect]
     Indication: BIPOLAR DISORDER
     Dosage: 5 MG/1 DAY
     Dates: start: 20020101
  2. ZOCOR [Concomitant]
  3. ARICEPT [Concomitant]

REACTIONS (2)
  - BLOOD PROLACTIN ABNORMAL [None]
  - BREAST CANCER FEMALE [None]
